FAERS Safety Report 6785023-X (Version None)
Quarter: 2010Q2

REPORT INFORMATION
  Report Type: 
  Country: None (occurrence: None)
  Receive Date: 20100622
  Receipt Date: 20100615
  Transmission Date: 20101027
  Serious: Yes (Hospitalization)
  Sender: FDA-Public Use
  Company Number: PHHO2010DE09113

PATIENT
  Sex: Female
  Weight: 79 kg

DRUGS (3)
  1. SIMULECT [Suspect]
     Indication: LIVER TRANSPLANT
     Dosage: 20 MG
     Route: 042
     Dates: start: 20071205, end: 20071205
  2. SANDIMMUNE [Suspect]
     Indication: LIVER TRANSPLANT
     Dosage: 150 MG, BID
     Route: 042
     Dates: start: 20071207
  3. CERTICAN [Suspect]
     Indication: LIVER TRANSPLANT
     Dosage: UNK
     Dates: start: 20071208

REACTIONS (1)
  - RENAL FAILURE [None]
